FAERS Safety Report 10367991 (Version 3)
Quarter: 2014Q4

REPORT INFORMATION
  Report Type: Report from Study
  Country: FR (occurrence: FR)
  Receive Date: 20140807
  Receipt Date: 20141110
  Transmission Date: 20150528
  Serious: Yes (Other)
  Sender: FDA-Public Use
  Company Number: FR-JNJFOC-20140800340

PATIENT
  Age: 41 Year
  Sex: Female

DRUGS (3)
  1. EPITOMAX [Suspect]
     Active Substance: TOPIRAMATE
     Indication: CLUSTER HEADACHE
     Route: 048
  2. EPITOMAX [Suspect]
     Active Substance: TOPIRAMATE
     Indication: CLUSTER HEADACHE
     Route: 048
  3. EPITOMAX [Suspect]
     Active Substance: TOPIRAMATE
     Indication: CLUSTER HEADACHE
     Route: 048

REACTIONS (13)
  - Paraesthesia [Unknown]
  - Ear pain [Recovered/Resolved]
  - Pollakiuria [Unknown]
  - Constipation [Unknown]
  - Drug ineffective [Unknown]
  - Amnesia [Unknown]
  - Visual impairment [Unknown]
  - Drug dependence [Unknown]
  - Decreased appetite [Recovering/Resolving]
  - Initial insomnia [Unknown]
  - Mood altered [Unknown]
  - Anxiety [Unknown]
  - Self esteem decreased [Recovering/Resolving]
